FAERS Safety Report 6475532-5 (Version None)
Quarter: 2009Q4

REPORT INFORMATION
  Report Type: 
  Country: None (occurrence: None)
  Receive Date: 20091204
  Receipt Date: 20091202
  Transmission Date: 20100525
  Serious: Yes (Death)
  Sender: FDA-Public Use
  Company Number: PHEH2009US17106

PATIENT

DRUGS (1)
  1. NEORAL [Suspect]
     Dosage: 100 MG, BID
     Route: 048
     Dates: start: 20090903

REACTIONS (1)
  - DEATH [None]
